FAERS Safety Report 10231152 (Version 1)
Quarter: 2014Q2

REPORT INFORMATION
  Report Type: Spontaneous
  Country: GB (occurrence: GB)
  Receive Date: 20140611
  Receipt Date: 20140611
  Transmission Date: 20141212
  Serious: Yes (Hospitalization, Other)
  Sender: FDA-Public Use
  Company Number: GB-VIIV HEALTHCARE LIMITED-B1001046A

PATIENT
  Age: 37 Year
  Sex: Female

DRUGS (3)
  1. LAMIVUDINE-HIV [Suspect]
     Indication: HIV INFECTION
     Route: 065
     Dates: start: 200403
  2. EFAVIRENZ [Suspect]
     Indication: HIV INFECTION
     Route: 065
     Dates: start: 200403
  3. TENOFOVIR [Suspect]
     Indication: HIV INFECTION
     Route: 065
     Dates: start: 200403

REACTIONS (12)
  - Immune reconstitution inflammatory syndrome [Recovered/Resolved]
  - Haemolysis [Unknown]
  - Anaemia [Unknown]
  - Splenomegaly [Unknown]
  - Marrow hyperplasia [Unknown]
  - Angioedema [Unknown]
  - Swelling face [Unknown]
  - Pruritus [Unknown]
  - Peripheral swelling [Unknown]
  - Vascular compression [Unknown]
  - Lymphadenopathy [Unknown]
  - Castleman^s disease [Unknown]
